FAERS Safety Report 4715344-3 (Version None)
Quarter: 2005Q3

REPORT INFORMATION
  Report Type: 
  Country: None (occurrence: None)
  Receive Date: 20050715
  Receipt Date: 20050310
  Transmission Date: 20060218
  Serious: Yes (Hospitalization, Other)
  Sender: FDA-Public Use
  Company Number: US-MERCK-0503USA02369

PATIENT
  Age: 55 Year
  Sex: Female
  Weight: 68 kg

DRUGS (6)
  1. VIOXX [Suspect]
     Indication: ARTHRITIS
     Route: 048
     Dates: start: 20000428, end: 20040523
  2. ZESTRIL [Concomitant]
     Route: 065
     Dates: start: 20000101, end: 20040101
  3. HYDROCHLOROTHIAZIDE [Concomitant]
     Route: 065
     Dates: start: 20000101, end: 20040101
  4. COZAAR [Concomitant]
     Route: 048
     Dates: start: 20010101
  5. IBUPROFEN [Concomitant]
     Route: 065
     Dates: start: 20020101, end: 20030101
  6. ZOLOFT [Concomitant]
     Route: 065
     Dates: start: 20000101, end: 20050501

REACTIONS (14)
  - ACTINIC KERATOSIS [None]
  - ACUTE MYOCARDIAL INFARCTION [None]
  - CARDIAC ARREST [None]
  - CARDIAC FAILURE CONGESTIVE [None]
  - CARDIOGENIC SHOCK [None]
  - EMOTIONAL DISTRESS [None]
  - ISCHAEMIC HEPATITIS [None]
  - METABOLIC ACIDOSIS [None]
  - PNEUMONIA [None]
  - RENAL FAILURE ACUTE [None]
  - RESPIRATORY FAILURE [None]
  - SKIN PAPILLOMA [None]
  - THORACIC CAVITY DRAINAGE [None]
  - VENTRICULAR TACHYCARDIA [None]
